FAERS Safety Report 7915834-6 (Version None)
Quarter: 2011Q4

REPORT INFORMATION
  Report Type: 
  Country: None (occurrence: None)
  Receive Date: 20111115
  Receipt Date: 20111111
  Transmission Date: 20120403
  Serious: Yes (Other)
  Sender: FDA-Public Use
  Company Number: US-PFIZER INC-2011276944

PATIENT
  Sex: Male

DRUGS (2)
  1. GEODON [Suspect]
     Dosage: UNK
  2. LITHIUM [Suspect]
     Dosage: UNK

REACTIONS (6)
  - OVERDOSE [None]
  - BIPOLAR DISORDER [None]
  - BLINDNESS [None]
  - NERVOUS SYSTEM DISORDER [None]
  - SCHIZOPHRENIA [None]
  - WOUND [None]
